FAERS Safety Report 4474869-9 (Version None)
Quarter: 2004Q4

REPORT INFORMATION
  Report Type: 
  Country: None (occurrence: None)
  Receive Date: 20041012
  Receipt Date: 20040928
  Transmission Date: 20050328
  Serious: Yes (Hospitalization)
  Sender: FDA-Public Use
  Company Number: 2004064733

PATIENT
  Age: 79 Year
  Sex: Female
  Weight: 49 kg

DRUGS (12)
  1. UNASYN [Suspect]
     Indication: INTESTINAL OBSTRUCTION
     Dosage: 3 GRAM (1.5 GRAM, 2 IN 1 D), INTRAVENOUS
     Route: 042
     Dates: start: 20040807, end: 20040810
  2. PRAVASTATIN SODIUM [Concomitant]
  3. LISINOPRIL [Concomitant]
  4. CLEMASTINE FUMARATE (CLEMASTINE KUMARATE) [Concomitant]
  5. WARFARIN (WARFARIN) [Concomitant]
  6. STARLIX [Concomitant]
  7. METOCLOPRAMIDE [Concomitant]
  8. HYOSCINE HBR HYT [Concomitant]
  9. ELCATONIN (ELCATONIN) [Concomitant]
  10. MELOXICAM (MELOXICAM) [Concomitant]
  11. REBAMIPIDE (REBAMIPIDE) [Concomitant]
  12. DICLOFENAC SODIUM [Concomitant]

REACTIONS (2)
  - ENTEROCOLITIS HAEMORRHAGIC [None]
  - GASTRITIS EROSIVE [None]
